FAERS Safety Report 7296429-7 (Version None)
Quarter: 2011Q1

REPORT INFORMATION
  Report Type: 
  Country: None (occurrence: None)
  Receive Date: 20110216
  Receipt Date: 20110204
  Transmission Date: 20110831
  Serious: Yes (Death, Other)
  Sender: FDA-Public Use
  Company Number: JP-BAYER-201012209BYL

PATIENT
  Sex: Male
  Weight: 58.6 kg

DRUGS (16)
  1. MUCOSTA [Concomitant]
     Dosage: 300 MG (DAILY DOSE), , ORAL
     Route: 048
     Dates: start: 20090320
  2. TAKEPRON [Concomitant]
     Dosage: 15 MG (DAILY DOSE), , ORAL
     Route: 048
     Dates: start: 20090803, end: 20091213
  3. SOLITA-T 3G [Concomitant]
     Dosage: DAILY DOSE 200 ML
     Route: 042
     Dates: start: 20090527, end: 20090810
  4. RIZE [Concomitant]
     Dosage: 5 MG, UNK
     Route: 048
     Dates: start: 20100317, end: 20100401
  5. GASMOTIN [Concomitant]
     Dosage: 15 MG (DAILY DOSE), , ORAL
     Route: 048
     Dates: start: 20090422
  6. C-PARA [Concomitant]
     Dosage: 2 ML, QD
     Route: 042
     Dates: start: 20090317, end: 20090918
  7. SOLITA-T3 [Concomitant]
     Dosage: 200 ML, QD
     Route: 042
     Dates: start: 20090317, end: 20090918
  8. MYSLEE [Concomitant]
     Dosage: 5 MG, UNK
     Dates: start: 20100314, end: 20100321
  9. ALDACTONE [Concomitant]
     Dosage: 1 DF, UNK
     Dates: start: 20100224, end: 20100401
  10. LASIX [Concomitant]
     Dosage: 20 MG, UNK
     Dates: start: 20100208, end: 20100401
  11. PRIMPERAN TAB [Concomitant]
     Dosage: 15 MG, UNK
     Dates: start: 20100226, end: 20100304
  12. NEO-MINOPHAGEN C [Concomitant]
     Dosage: 40 ML (DAILY DOSE), , INTRAVENOUS
     Route: 042
     Dates: start: 20090225
  13. BUSCOPAN [Concomitant]
     Dosage: DAILY DOSE 20 MG
     Route: 042
     Dates: start: 20090918, end: 20090918
  14. NEXAVAR [Suspect]
     Indication: HEPATIC NEOPLASM MALIGNANT
     Dosage: 800 MG, QD
     Route: 048
     Dates: start: 20090803, end: 20100207
  15. NEXAVAR [Suspect]
     Dosage: 400 MG, QD
     Route: 048
     Dates: start: 20100208, end: 20100303
  16. DAIKENTYUTO [Concomitant]
     Dosage: 9 DF, QD
     Route: 048
     Dates: start: 20090428, end: 20100323

REACTIONS (13)
  - DIARRHOEA [None]
  - BLOOD BILIRUBIN INCREASED [None]
  - NAUSEA [None]
  - ABDOMINAL DISTENSION [None]
  - PALMAR-PLANTAR ERYTHRODYSAESTHESIA SYNDROME [None]
  - ALOPECIA [None]
  - TETANY [None]
  - NEOPLASM MALIGNANT [None]
  - DECREASED APPETITE [None]
  - MUCOUS MEMBRANE DISORDER [None]
  - VOMITING [None]
  - RASH [None]
  - DYSPHONIA [None]
